FAERS Safety Report 12392250 (Version 1)
Quarter: 2016Q2

REPORT INFORMATION
  Report Type: Spontaneous
  Country: US (occurrence: US)
  Receive Date: 20160523
  Receipt Date: 20160523
  Transmission Date: 20160815
  Serious: Yes (Other)
  Sender: FDA-Public Use
  Company Number: US-TEVA-562946USA

PATIENT
  Sex: Female

DRUGS (1)
  1. SOTALOL. [Suspect]
     Active Substance: SOTALOL
     Route: 065
     Dates: start: 20150405, end: 20150505

REACTIONS (9)
  - Depressed level of consciousness [Unknown]
  - Flatulence [Unknown]
  - Dysphonia [Unknown]
  - Fatigue [Unknown]
  - Diarrhoea [Unknown]
  - Vision blurred [Unknown]
  - Dysgeusia [Unknown]
  - Anal incontinence [Unknown]
  - Asthenia [Unknown]
